FAERS Safety Report 21800808 (Version 3)
Quarter: 2023Q1

REPORT INFORMATION
  Report Type: Spontaneous
  Country: DK (occurrence: DK)
  Receive Date: 20221230
  Receipt Date: 20230119
  Transmission Date: 20230418
  Serious: Yes (Death, Life-Threatening, Hospitalization, Other)
  Sender: FDA-Public Use
  Company Number: DK-MLMSERVICE-20221031-3888911-1

PATIENT
  Age: 40 Year
  Sex: Male

DRUGS (4)
  1. TACROLIMUS [Suspect]
     Active Substance: TACROLIMUS
     Indication: Immunosuppressant drug therapy
     Dosage: 3-5 UG/L
     Route: 065
  2. MYCOPHENOLATE MOFETIL [Suspect]
     Active Substance: MYCOPHENOLATE MOFETIL
     Indication: Immunosuppressant drug therapy
     Dosage: UNK
     Route: 065
  3. PREDNISOLONE [Suspect]
     Active Substance: PREDNISOLONE
     Indication: Immunosuppressant drug therapy
     Dosage: UNK
     Route: 065
  4. PEMBROLIZUMAB [Concomitant]
     Active Substance: PEMBROLIZUMAB
     Indication: Product used for unknown indication
     Dosage: UNK
     Route: 065

REACTIONS (8)
  - Metastases to abdominal wall [Fatal]
  - Metastases to bone [Fatal]
  - Metastases to retroperitoneum [Fatal]
  - Metastatic neoplasm [Fatal]
  - Metastases to liver [Fatal]
  - Bladder transitional cell carcinoma stage III [Fatal]
  - Small intestinal obstruction [Fatal]
  - Transitional cell carcinoma metastatic [Fatal]
